FAERS Safety Report 19120442 (Version 1)
Quarter: 2021Q2

REPORT INFORMATION
  Report Type: Spontaneous
  Country: US (occurrence: US)
  Receive Date: 20210412
  Receipt Date: 20210412
  Transmission Date: 20210717
  Serious: No
  Sender: FDA-Public Use
  Company Number: US-SA-2021SA109170

PATIENT
  Age: 79 Year
  Sex: Male

DRUGS (2)
  1. AMBIEN [Suspect]
     Active Substance: ZOLPIDEM TARTRATE
     Indication: ANXIETY
     Dosage: 10 MG
  2. AMBIEN [Suspect]
     Active Substance: ZOLPIDEM TARTRATE
     Indication: INSOMNIA

REACTIONS (6)
  - Pain in extremity [Unknown]
  - Dry mouth [Unknown]
  - Dizziness [Unknown]
  - Muscular weakness [Unknown]
  - Feeling abnormal [Unknown]
  - Headache [Unknown]
